FAERS Safety Report 17240294 (Version 2)
Quarter: 2020Q1

REPORT INFORMATION
  Report Type: Report from Study
  Country: DE (occurrence: DE)
  Receive Date: 20200107
  Receipt Date: 20200207
  Transmission Date: 20200409
  Serious: Yes (Hospitalization)
  Sender: FDA-Public Use
  Company Number: DE-ROCHE-1573256

PATIENT
  Age: 53 Year
  Sex: Female

DRUGS (18)
  1. METHOTREXATE. [Suspect]
     Active Substance: METHOTREXATE
     Dosage: DOSE 10MG
     Route: 065
  2. ROACTEMRA [Suspect]
     Active Substance: TOCILIZUMAB
     Indication: RHEUMATOID ARTHRITIS
     Route: 042
     Dates: start: 20150731
  3. SELENIUM [Concomitant]
     Active Substance: SELENIUM
  4. ROACTEMRA [Suspect]
     Active Substance: TOCILIZUMAB
     Dosage: DEPENDING ON BODY WEIGHT
     Route: 042
     Dates: start: 20180331
  5. FOLIC ACID. [Concomitant]
     Active Substance: FOLIC ACID
     Route: 065
  6. METHOTREXATE. [Suspect]
     Active Substance: METHOTREXATE
     Indication: RHEUMATOID ARTHRITIS
     Dosage: ON FRIDAYS AND SATURDAYS
     Route: 048
  7. HCTZ [Suspect]
     Active Substance: HYDROCHLOROTHIAZIDE
     Indication: PRODUCT USED FOR UNKNOWN INDICATION
     Route: 065
  8. CORTISONE [Concomitant]
     Active Substance: CORTISONE
     Indication: RHEUMATOID ARTHRITIS
  9. DEKRISTOL [Concomitant]
     Active Substance: CHOLECALCIFEROL
     Route: 065
  10. ROACTEMRA [Suspect]
     Active Substance: TOCILIZUMAB
     Indication: RHEUMATOID ARTHRITIS
     Route: 058
     Dates: start: 20150302, end: 20150724
  11. METOPROLOL. [Suspect]
     Active Substance: METOPROLOL
     Indication: PRODUCT USED FOR UNKNOWN INDICATION
     Route: 065
  12. PANTOPRAZOL [PANTOPRAZOLE] [Concomitant]
     Active Substance: PANTOPRAZOLE
     Route: 065
  13. VITAMIN C [Concomitant]
     Active Substance: ASCORBIC ACID
     Route: 065
  14. CORTISONE [Concomitant]
     Active Substance: CORTISONE
     Indication: RHEUMATOID ARTHRITIS
  15. OTEZLA [Suspect]
     Active Substance: APREMILAST
     Indication: PSORIATIC ARTHROPATHY
     Route: 048
  16. TILIDIN [Concomitant]
     Active Substance: NALOXONE HYDROCHLORIDE\TILIDINE HYDROCHLORIDE
     Indication: RHEUMATOID ARTHRITIS
     Route: 065
  17. LODOTRA [Concomitant]
     Active Substance: PREDNISONE
     Route: 065
  18. METHIONIN [Concomitant]
     Active Substance: METHIONINE

REACTIONS (20)
  - Laboratory test abnormal [Recovering/Resolving]
  - Arthralgia [Not Recovered/Not Resolved]
  - Rheumatoid arthritis [Not Recovered/Not Resolved]
  - Arthropathy [Recovering/Resolving]
  - Infection [Recovered/Resolved]
  - Joint swelling [Unknown]
  - Migraine [Unknown]
  - Gastric disorder [Unknown]
  - Liver function test increased [Not Recovered/Not Resolved]
  - Psoriasis [Recovered/Resolved]
  - Dyspnoea [Recovered/Resolved]
  - Myosclerosis [Unknown]
  - Pneumonia [Recovered/Resolved]
  - Drug ineffective [Unknown]
  - Overweight [Unknown]
  - C-reactive protein increased [Recovered/Resolved]
  - Arthritis [Unknown]
  - Psoriatic arthropathy [Recovering/Resolving]
  - Drug hypersensitivity [Recovered/Resolved]
  - Therapeutic product effect decreased [Unknown]

NARRATIVE: CASE EVENT DATE: 20150302
